FAERS Safety Report 18708432 (Version 1)
Quarter: 2021Q1

REPORT INFORMATION
  Report Type: Spontaneous
  Country: IE (occurrence: IE)
  Receive Date: 20210106
  Receipt Date: 20210106
  Transmission Date: 20210419
  Serious: Yes (Hospitalization, Other)
  Sender: FDA-Public Use
  Company Number: IE-VERTEX PHARMACEUTICALS-2020-025579

PATIENT
  Age: 18 Year
  Sex: Female

DRUGS (13)
  1. VITAMIN K [Concomitant]
     Active Substance: PHYTONADIONE
     Dosage: 10 MILLIGRAM, QD
     Route: 048
  2. ALTAVITA D3 [Concomitant]
     Dosage: TWICE A WEEK
     Route: 048
  3. SYMBICORT [Concomitant]
     Active Substance: BUDESONIDE\FORMOTEROL FUMARATE DIHYDRATE
     Dosage: 400MCG/12MCG, BID
     Route: 055
  4. SALINE [SODIUM CHLORIDE] [Concomitant]
     Active Substance: SODIUM CHLORIDE
     Dosage: BID
     Route: 055
  5. KALYDECO [Suspect]
     Active Substance: IVACAFTOR
     Indication: CYSTIC FIBROSIS
     Dosage: 150 MILLIGRAM NOCTE
     Route: 048
     Dates: start: 20201208
  6. CREON [Concomitant]
     Active Substance: PANCRELIPASE AMYLASE\PANCRELIPASE LIPASE\PANCRELIPASE PROTEASE
     Dosage: 25000 IU, WITH MEALS
     Route: 048
  7. KAFTRIO [Suspect]
     Active Substance: ELEXACAFTOR\IVACAFTOR\TEZACAFTOR
     Indication: CYSTIC FIBROSIS
     Dosage: 2 TABLETS MANE
     Route: 048
     Dates: start: 20201208
  8. TOBI PODHALER [Concomitant]
     Active Substance: TOBRAMYCIN
     Dosage: ROTATES MONTHLY: COLOBREATHE AND TOBIPODHALER, 112 MG
     Route: 055
  9. AVAMYS [Concomitant]
     Active Substance: FLUTICASONE FUROATE
     Dosage: NASAL SPRAY, BID
     Route: 045
  10. ESOMEPRAZOLE. [Concomitant]
     Active Substance: ESOMEPRAZOLE MAGNESIUM
     Dosage: 40MG, EVERY 24 HOURS
     Route: 048
  11. AZITHROMYCIN [AZITHROMYCIN DIHYDRATE] [Concomitant]
     Dosage: MONDAY/WEDNESDAY/FRIDAY
     Route: 048
  12. VENTOLINE [SALBUTAMOL SULFATE] [Concomitant]
     Active Substance: ALBUTEROL SULFATE
     Dosage: 100 MICROGRAM, PRN
     Route: 055
  13. COLOBREATHE [Concomitant]
     Active Substance: COLISTIMETHATE SODIUM
     Dosage: ROTATES MONTHLY: COLOBREATHE AND TOBIPODHALER
     Route: 055

REACTIONS (3)
  - Cough [Recovered/Resolved]
  - Sputum increased [Recovered/Resolved]
  - Haemoptysis [Recovered/Resolved]

NARRATIVE: CASE EVENT DATE: 20201210
